FAERS Safety Report 4675128-1 (Version None)
Quarter: 2005Q2

REPORT INFORMATION
  Report Type: 
  Country: None (occurrence: None)
  Receive Date: 20050526
  Receipt Date: 20050309
  Transmission Date: 20051028
  Serious: Yes (Hospitalization, Other)
  Sender: FDA-Public Use
  Company Number: US-MERCK-0503USA01683

PATIENT
  Age: 49 Year
  Sex: Female
  Weight: 73 kg

DRUGS (3)
  1. VIOXX [Suspect]
     Indication: BACK PAIN
     Route: 048
     Dates: end: 20020430
  2. VIOXX [Suspect]
     Route: 048
     Dates: start: 20020918
  3. VIOXX [Suspect]
     Route: 048
     Dates: start: 20030601, end: 20030901

REACTIONS (18)
  - ABDOMINAL PAIN LOWER [None]
  - BACK PAIN [None]
  - CEREBROVASCULAR ACCIDENT [None]
  - COMA [None]
  - CONVULSION [None]
  - DEPRESSION [None]
  - DIARRHOEA [None]
  - FACE OEDEMA [None]
  - FAECES DISCOLOURED [None]
  - FATIGUE [None]
  - HEADACHE [None]
  - HYPERTENSION [None]
  - OEDEMA [None]
  - OEDEMA PERIPHERAL [None]
  - ORAL SOFT TISSUE DISORDER [None]
  - PAIN [None]
  - UPPER RESPIRATORY TRACT INFECTION [None]
  - VOMITING [None]
